FAERS Safety Report 4538219-1 (Version None)
Quarter: 2004Q4

REPORT INFORMATION
  Report Type: 
  Country: None (occurrence: None)
  Receive Date: 20041227
  Receipt Date: 20041215
  Transmission Date: 20050328
  Serious: Yes (Other)
  Sender: FDA-Public Use
  Company Number: US-JNJFOC-20041202658

PATIENT
  Sex: Female
  Weight: 86.64 kg

DRUGS (24)
  1. INFLIXIMAB [Suspect]
     Indication: RHEUMATOID ARTHRITIS
     Route: 042
  2. AMITRIPTYLINE HCL [Concomitant]
  3. ATENOLOL [Concomitant]
  4. METFORMIN HCL [Concomitant]
  5. PLAVIX [Concomitant]
  6. POTASSIUM [Concomitant]
  7. PREDNISONE TAB [Concomitant]
  8. TYLENOL (CAPLET) [Concomitant]
  9. METHOTREXATE [Concomitant]
  10. AVALIDE [Concomitant]
  11. AVALIDE [Concomitant]
  12. ADVAIR DISKUS 100/50 [Concomitant]
  13. ADVAIR DISKUS 100/50 [Concomitant]
  14. COMBIVENT [Concomitant]
     Route: 055
  15. COMBIVENT [Concomitant]
     Route: 055
  16. MULTI-VITAMIN [Concomitant]
  17. MULTI-VITAMIN [Concomitant]
  18. MULTI-VITAMIN [Concomitant]
  19. MULTI-VITAMIN [Concomitant]
  20. MULTI-VITAMIN [Concomitant]
  21. MULTI-VITAMIN [Concomitant]
  22. MULTI-VITAMIN [Concomitant]
  23. MULTI-VITAMIN [Concomitant]
  24. VITAMIN C [Concomitant]

REACTIONS (1)
  - MALIGNANT MELANOMA [None]
